FAERS Safety Report 25609770 (Version 4)
Quarter: 2025Q3

REPORT INFORMATION
  Report Type: Report from Study
  Country: US (occurrence: US)
  Receive Date: 20250728
  Receipt Date: 20250822
  Transmission Date: 20251021
  Serious: Yes (Hospitalization, Other)
  Sender: ACADIA PHARMACEUTICALS
  Company Number: US-ACADIA PHARMACEUTICALS INC.-ACA-2025-PIM-008567

PATIENT
  Sex: Male
  Weight: 85.3 kg

DRUGS (13)
  1. NUPLAZID [Suspect]
     Active Substance: PIMAVANSERIN TARTRATE
     Indication: Parkinson^s disease psychosis
     Dosage: 34 MILLIGRAM, QD
     Route: 048
     Dates: start: 201805
  2. SINEMET [Concomitant]
     Active Substance: CARBIDOPA\LEVODOPA
     Dosage: 1 DOSAGE FORM, TID (WITH MEALS)
     Route: 048
     Dates: start: 20250718, end: 20250718
  3. PRINIVIL [Concomitant]
     Active Substance: LISINOPRIL
     Indication: Essential hypertension
     Dosage: 10 MILLIGRAM, BID
     Route: 048
     Dates: start: 20250718, end: 20250811
  4. FLOMAX [Concomitant]
     Active Substance: TAMSULOSIN HYDROCHLORIDE
     Indication: Micturition urgency
  5. FLOMAX [Concomitant]
     Active Substance: TAMSULOSIN HYDROCHLORIDE
     Indication: Pollakiuria
  6. FLOMAX [Concomitant]
     Active Substance: TAMSULOSIN HYDROCHLORIDE
     Indication: Urinary retention
  7. FLOMAX [Concomitant]
     Active Substance: TAMSULOSIN HYDROCHLORIDE
     Indication: Benign prostatic hyperplasia
  8. LIPITOR [Concomitant]
     Active Substance: ATORVASTATIN CALCIUM
     Indication: Hyperlipidaemia
     Dosage: 40 MILLIGRAM, QD (NIGHTLY)
     Route: 048
     Dates: start: 20250718, end: 20250718
  9. KENALOG [Concomitant]
     Active Substance: TRIAMCINOLONE ACETONIDE
     Route: 061
     Dates: start: 20250718, end: 20250801
  10. CENTANY [Concomitant]
     Active Substance: MUPIROCIN
     Route: 061
  11. ECOTRIN [Concomitant]
     Active Substance: ASPIRIN
     Indication: Cerebrovascular accident
     Dosage: 1 DOSAGE FORM, QD
     Route: 048
  12. RISPERIDONE [Concomitant]
     Active Substance: RISPERIDONE
     Dates: end: 2018
  13. ZESTRIL [Concomitant]
     Active Substance: LISINOPRIL
     Indication: Hyperlipidaemia
     Dosage: 10 MILLIGRAM, BID
     Route: 048
     Dates: start: 20250718, end: 20250811

REACTIONS (3)
  - Hallucination, visual [Recovered/Resolved]
  - Surgery [Unknown]
  - Adverse event [Unknown]
